FAERS Safety Report 16053285 (Version 1)
Quarter: 2019Q1

REPORT INFORMATION
  Report Type: Report from Study
  Country: CN (occurrence: CN)
  Receive Date: 20190308
  Receipt Date: 20190308
  Transmission Date: 20190418
  Serious: Yes (Other)
  Sender: FDA-Public Use
  Company Number: CN-TAKEDA-2019TUS012127

PATIENT

DRUGS (1)
  1. BORTEZOMIB. [Suspect]
     Active Substance: BORTEZOMIB
     Indication: PLASMA CELL MYELOMA
     Dosage: UNK
     Route: 058

REACTIONS (8)
  - Neuropathy peripheral [Unknown]
  - Thrombocytopenia [Unknown]
  - Asthenia [Unknown]
  - Hypotension [Unknown]
  - Hepatic function abnormal [Unknown]
  - Vomiting [Unknown]
  - Cardiac disorder [Unknown]
  - Nausea [Unknown]
